FAERS Safety Report 9590032 (Version 1)
Quarter: 2013Q4

REPORT INFORMATION
  Report Type: Spontaneous
  Country: US (occurrence: US)
  Receive Date: 20131003
  Receipt Date: 20131003
  Transmission Date: 20140711
  Serious: No
  Sender: FDA-Public Use
  Company Number: US-AMGEN-USASP2012074416

PATIENT
  Age: 61 Year
  Sex: Male
  Weight: 102.4 kg

DRUGS (5)
  1. ENBREL [Suspect]
     Indication: PRODUCT USED FOR UNKNOWN INDICATION
     Dosage: 50 MG, QWK
  2. LIPITOR [Concomitant]
     Dosage: 10 MG, UNK
  3. PROVENTIL                          /00139501/ [Concomitant]
     Dosage: 900 MUG, UNK
  4. ATENOLOL [Concomitant]
     Dosage: 25 MG, UNK
  5. VITAMIN D                          /00107901/ [Concomitant]
     Dosage: 400 UNK, UNK

REACTIONS (1)
  - Tooth infection [Unknown]
